FAERS Safety Report 8613152-4 (Version None)
Quarter: 2012Q3

REPORT INFORMATION
  Report Type: 
  Country: None (occurrence: None)
  Receive Date: 20120822
  Receipt Date: 20120815
  Transmission Date: 20120928
  Serious: Yes (Other)
  Sender: FDA-Public Use
  Company Number: SE-RB-043594-12

PATIENT
  Sex: Female

DRUGS (2)
  1. SUBUTEX [Suspect]
     Indication: PRODUCT USED FOR UNKNOWN INDICATION
     Dosage: TAKES 3.5 X 8 MG FILM
     Route: 065
     Dates: start: 20070723, end: 20080723
  2. METADON DNE ORAL SOLUTION 5 MG/ML [Suspect]
     Indication: PRODUCT USED FOR UNKNOWN INDICATION
     Route: 065
     Dates: start: 20080723

REACTIONS (8)
  - PARAESTHESIA [None]
  - FOOT FRACTURE [None]
  - HYPOAESTHESIA [None]
  - ABNORMAL WEIGHT GAIN [None]
  - OEDEMA [None]
  - DECREASED APPETITE [None]
  - SENSORY LOSS [None]
  - OEDEMA PERIPHERAL [None]
